FAERS Safety Report 9931764 (Version 1)
Quarter: 2014Q1

REPORT INFORMATION
  Report Type: Spontaneous
  Country: ES (occurrence: ES)
  Receive Date: 20140228
  Receipt Date: 20140228
  Transmission Date: 20141002
  Serious: Yes (Disabling, Other)
  Sender: FDA-Public Use
  Company Number: ES-JNJFOC-20140212036

PATIENT
  Age: 85 Year
  Sex: Female

DRUGS (1)
  1. RISPERIDONE [Suspect]
     Indication: COTARD^S SYNDROME
     Route: 065

REACTIONS (4)
  - Dementia with Lewy bodies [Unknown]
  - Parkinsonism [Recovering/Resolving]
  - Hypersomnia [Recovering/Resolving]
  - Visual impairment [Unknown]
